FAERS Safety Report 5258310-4 (Version None)
Quarter: 2007Q1

REPORT INFORMATION
  Report Type: 
  Country: None (occurrence: None)
  Receive Date: 20070308
  Receipt Date: 20070227
  Transmission Date: 20070707
  Serious: Yes (Disabling, Other)
  Sender: FDA-Public Use
  Company Number: JP-NOVOPROD-261190

PATIENT
  Age: 39 Year
  Sex: Male

DRUGS (2)
  1. NOVORAPID CHU FLEXPEN [Suspect]
     Indication: DIABETES MELLITUS INSULIN-DEPENDENT
     Dosage: UNK IU, QD
     Route: 058
     Dates: start: 20060215, end: 20060616
  2. NOVOLIN N [Suspect]
     Indication: DIABETES MELLITUS INSULIN-DEPENDENT
     Dosage: UNK IU, QD
     Route: 058
     Dates: start: 20060215, end: 20060616

REACTIONS (4)
  - ANTI-INSULIN ANTIBODY [None]
  - HEPATITIS [None]
  - HYPERSENSITIVITY [None]
  - INJECTION SITE REACTION [None]
